FAERS Safety Report 7204800-4 (Version None)
Quarter: 2010Q4

REPORT INFORMATION
  Report Type: 
  Country: None (occurrence: None)
  Receive Date: 20101230
  Receipt Date: 20101221
  Transmission Date: 20110411
  Serious: Yes (Hospitalization, Other)
  Sender: FDA-Public Use
  Company Number: US-B.I. PHARMACEUTICALS,INC./RIDGEFIELD-2010-BP-15001PF

PATIENT
  Sex: Female

DRUGS (6)
  1. SPIRIVA [Suspect]
     Indication: EMPHYSEMA
     Dosage: 18 MCG
     Route: 055
     Dates: start: 20100101, end: 20100101
  2. SPIRIVA [Suspect]
     Indication: DYSPNOEA
  3. SPIRIVA [Suspect]
     Indication: CHRONIC OBSTRUCTIVE PULMONARY DISEASE
  4. NARDIL [Suspect]
     Indication: DEPRESSION
     Dosage: 60 MG
     Route: 048
     Dates: start: 19780101
  5. ADVAIR [Suspect]
     Indication: EMPHYSEMA
     Dates: start: 20100101, end: 20100101
  6. ADVAIR [Suspect]
     Indication: DYSPNOEA

REACTIONS (4)
  - HEADACHE [None]
  - ILL-DEFINED DISORDER [None]
  - LUNG DISORDER [None]
  - MIGRAINE [None]
